FAERS Safety Report 9187790 (Version 1)
Quarter: 2013Q1

REPORT INFORMATION
  Report Type: Spontaneous
  Country: US (occurrence: US)
  Receive Date: 20130325
  Receipt Date: 20130325
  Transmission Date: 20140127
  Serious: No
  Sender: FDA-Public Use
  Company Number: US-MYLANLABS-2012S1008419

PATIENT
  Age: 61 Year
  Sex: Male
  Weight: 74.39 kg

DRUGS (7)
  1. FENTANYL TRANSDERMAL SYSTEM [Suspect]
     Indication: BACK PAIN
     Dosage: CHANGE Q72HR
     Route: 062
     Dates: start: 201104
  2. FENTANYL TRANSDERMAL SYSTEM [Suspect]
     Indication: BACK PAIN
     Dosage: CHANGE Q72HR
     Route: 062
     Dates: start: 201104
  3. TESTOSTERONE [Concomitant]
     Route: 061
  4. VITAMIN C [Concomitant]
     Route: 048
  5. ROSE HIPS [Concomitant]
  6. PROBIOTIC /06395501/ [Concomitant]
  7. PERCOCET [Concomitant]

REACTIONS (4)
  - Drug effect decreased [Not Recovered/Not Resolved]
  - Drug withdrawal syndrome [Not Recovered/Not Resolved]
  - Pain [Not Recovered/Not Resolved]
  - Somnolence [Not Recovered/Not Resolved]
